FAERS Safety Report 9687101 (Version 1)
Quarter: 2013Q4

REPORT INFORMATION
  Report Type: Spontaneous
  Country: US (occurrence: US)
  Receive Date: 20131113
  Receipt Date: 20131113
  Transmission Date: 20140711
  Serious: Yes (Hospitalization, Disabling, Other)
  Sender: FDA-Public Use
  Company Number: US-TEVA-443705USA

PATIENT
  Sex: Female

DRUGS (3)
  1. PARAGARD 380A [Suspect]
     Route: 015
     Dates: start: 20081119
  2. TORADOL [Suspect]
  3. IBUPROFEN [Suspect]

REACTIONS (48)
  - Pelvic inflammatory disease [Unknown]
  - Pneumonia streptococcal [Unknown]
  - Hydronephrosis [Unknown]
  - Haemorrhagic cyst [Unknown]
  - Ovarian cyst [Unknown]
  - Infection [Unknown]
  - Cystitis [Unknown]
  - Pelvic mass [Unknown]
  - Hypertension [Unknown]
  - Pelvic mass [Unknown]
  - Cellulitis [Unknown]
  - Ectopic pregnancy [Unknown]
  - Abscess [Unknown]
  - Anaemia [Unknown]
  - Device dislocation [Unknown]
  - Pelvic inflammatory disease [Unknown]
  - Eosinophilic cystitis [Unknown]
  - Pelvic pain [Unknown]
  - Gastritis erosive [Unknown]
  - Adhesion [Unknown]
  - Ovarian cyst [Unknown]
  - Pollakiuria [Unknown]
  - Dysuria [Unknown]
  - Constipation [Unknown]
  - Dysuria [Unknown]
  - Sensation of pressure [Unknown]
  - Painful defaecation [Unknown]
  - Pleural fibrosis [Unknown]
  - Escherichia infection [Unknown]
  - Wrong technique in drug usage process [Unknown]
  - Pain [Unknown]
  - Muscle spasms [Unknown]
  - Abdominal pain [Unknown]
  - Nausea [Unknown]
  - Vomiting [Unknown]
  - Vaginal discharge [Unknown]
  - Abdominal pain [Unknown]
  - Dyspareunia [Unknown]
  - Flank pain [Unknown]
  - Haemangioma of liver [Unknown]
  - Hepatic cyst [Unknown]
  - Back pain [Unknown]
  - Arthralgia [Unknown]
  - Metrorrhagia [Unknown]
  - Intervertebral disc degeneration [Unknown]
  - Intervertebral disc protrusion [Unknown]
  - Intervertebral disc protrusion [Unknown]
  - Cystitis noninfective [Unknown]
